FAERS Safety Report 6966407-3 (Version None)
Quarter: 2010Q3

REPORT INFORMATION
  Report Type: 
  Country: None (occurrence: None)
  Receive Date: 20100904
  Receipt Date: 20100816
  Transmission Date: 20110219
  Serious: Yes (Other)
  Sender: FDA-Public Use
  Company Number: PHHY2010BR54328

PATIENT
  Sex: Male
  Weight: 58 kg

DRUGS (6)
  1. FORASEQ [Suspect]
     Indication: DYSPNOEA
     Dosage: 1 CAPSULE OF EACH TREATMENT ONCE A DAY
     Dates: start: 20100809, end: 20100813
  2. FORASEQ [Suspect]
     Indication: COUGH
  3. XELODA [Concomitant]
     Indication: GASTROINTESTINAL CARCINOMA
     Dosage: 3 DF, BID
     Route: 048
  4. XELODA [Concomitant]
     Indication: HEPATIC NEOPLASM MALIGNANT
  5. XELODA [Concomitant]
     Indication: LUNG NEOPLASM MALIGNANT
  6. CHEMOTHERAPEUTICS NOS [Concomitant]
     Dosage: 1 SESSION EVERY 3 WEEKS

REACTIONS (5)
  - ASTHENIA [None]
  - DEVICE MALFUNCTION [None]
  - DRUG DOSE OMISSION [None]
  - DYSPNOEA [None]
  - SYNCOPE [None]
